FAERS Safety Report 17141195 (Version 3)
Quarter: 2020Q2

REPORT INFORMATION
  Report Type: Spontaneous
  Country: RU (occurrence: RU)
  Receive Date: 20191211
  Receipt Date: 20200427
  Transmission Date: 20200713
  Serious: Yes (Hospitalization, Congenital Anomaly)
  Sender: FDA-Public Use
  Company Number: RU-UCBSA-2019052344

PATIENT
  Age: 0 Year
  Sex: Male
  Weight: 4 kg

DRUGS (6)
  1. VIMPAT [Suspect]
     Active Substance: LACOSAMIDE
     Dosage: 150 MILLIGRAM, 2X/DAY (BID)
     Route: 063
     Dates: start: 2019
  2. FOLIC ACID. [Concomitant]
     Active Substance: FOLIC ACID
     Indication: PROPHYLAXIS
  3. VIMPAT [Suspect]
     Active Substance: LACOSAMIDE
     Dosage: 200 MILLIGRAM, 2X/DAY (BID)
     Route: 064
     Dates: start: 2019, end: 2019
  4. DUPHASTON [Concomitant]
     Active Substance: DYDROGESTERONE
     Indication: PRODUCT USED FOR UNKNOWN INDICATION
  5. VIMPAT [Suspect]
     Active Substance: LACOSAMIDE
     Indication: PARTIAL SEIZURES
     Dosage: 300 MG DAILY, 3X/DAY (TID)
     Route: 064
     Dates: start: 201903, end: 2019
  6. VIMPAT [Suspect]
     Active Substance: LACOSAMIDE
     Dosage: 150 MILLIGRAM, 2X/DAY (BID)
     Route: 064
     Dates: start: 2019, end: 20191125

REACTIONS (6)
  - Nervous system disorder [Unknown]
  - Autonomic nervous system imbalance [Unknown]
  - Exposure via breast milk [Unknown]
  - Neonatal asphyxia [Recovered/Resolved]
  - Bradycardia [Recovered/Resolved]
  - Maternal exposure before pregnancy [Unknown]

NARRATIVE: CASE EVENT DATE: 2019
